FAERS Safety Report 4373091-4 (Version None)
Quarter: 2004Q2

REPORT INFORMATION
  Report Type: 
  Country: None (occurrence: None)
  Receive Date: 20040526
  Receipt Date: 20040513
  Transmission Date: 20050107
  Serious: Yes (Hospitalization, Other)
  Sender: FDA-Public Use
  Company Number: 2004024313

PATIENT
  Age: 18 Year
  Sex: Female

DRUGS (9)
  1. NIFEDIPINE [Suspect]
     Indication: BLOOD PRESSURE INCREASED
     Dosage: ORAL
     Route: 048
  2. CYCLOSPORINE [Suspect]
     Indication: IMMUNOSUPPRESSION
     Dates: start: 19940101, end: 19980201
  3. ORAL CONTRACEPTIVE NOS (ORAL CONTRACEPTIVE NOS) [Suspect]
     Indication: ILL-DEFINED DISORDER
     Dosage: ORAL
     Route: 048
     Dates: start: 19970401
  4. AZATHIOPRINE [Concomitant]
  5. ENALAPRIL MALEATE [Concomitant]
  6. DIPHYRIDAMOLE (DIPYRIDAMOLE) [Concomitant]
  7. CALCIUM CARBONATE (CALCIUM CARBONATE) [Concomitant]
  8. IRON (IRON) [Concomitant]
  9. NITROFURANTOIN [Concomitant]

REACTIONS (11)
  - BLOOD FOLLICLE STIMULATING HORMONE DECREASED [None]
  - BLOOD LUTEINISING HORMONE DECREASED [None]
  - BLOOD PRESSURE INCREASED [None]
  - BREAST ADENOMA [None]
  - BREAST NECROSIS [None]
  - DISEASE RECURRENCE [None]
  - FIBROADENOMA OF BREAST [None]
  - GLOMERULONEPHRITIS MEMBRANOPROLIFERATIVE [None]
  - OESTRADIOL DECREASED [None]
  - POST PROCEDURAL HAEMATOMA [None]
  - URINARY TRACT INFECTION [None]
